FAERS Safety Report 14703953 (Version 2)
Quarter: 2018Q2

REPORT INFORMATION
  Report Type: Spontaneous
  Country: US (occurrence: US)
  Receive Date: 20180402
  Receipt Date: 20180504
  Transmission Date: 20180711
  Serious: No
  Sender: FDA-Public Use
  Company Number: US-PFIZER INC-2017213495

PATIENT
  Age: 10 Year
  Sex: Male
  Weight: 44 kg

DRUGS (8)
  1. GENOTROPIN [Suspect]
     Active Substance: SOMATROPIN
     Dosage: UNK, 1X/DAY (0.7, BY INJECTION)
  2. GENOTROPIN [Suspect]
     Active Substance: SOMATROPIN
     Dosage: UNK
     Dates: start: 201706
  3. GENOTROPIN [Suspect]
     Active Substance: SOMATROPIN
     Dosage: 0.9 MG, DAILY (0.15 MG/KG/WEEK)
  4. GENOTROPIN [Suspect]
     Active Substance: SOMATROPIN
     Dosage: UNK
  5. GENOTROPIN [Suspect]
     Active Substance: SOMATROPIN
     Dosage: 0.7 MG, DAILY (BEFORE BED)
  6. GENOTROPIN [Suspect]
     Active Substance: SOMATROPIN
     Indication: GROWTH HORMONE DEFICIENCY
     Dosage: 1.0 MG, DAILY
     Route: 058
     Dates: start: 20170421
  7. GENOTROPIN [Suspect]
     Active Substance: SOMATROPIN
     Dosage: 0.7 MG, DAILY
     Route: 058
     Dates: start: 201704
  8. GENOTROPIN [Suspect]
     Active Substance: SOMATROPIN
     Dosage: 0.7 MG, DAILY
     Route: 058

REACTIONS (5)
  - Product storage error [Unknown]
  - Drug administration error [Unknown]
  - Insulin-like growth factor increased [Unknown]
  - Incorrect dose administered [Unknown]
  - Device issue [Unknown]

NARRATIVE: CASE EVENT DATE: 201710
